APPROVED DRUG PRODUCT: ASACOL
Active Ingredient: MESALAMINE
Strength: 400MG
Dosage Form/Route: TABLET, DELAYED RELEASE;ORAL
Application: N019651 | Product #001
Applicant: ALLERGAN PHARMACEUTICALS INTERNATIONAL LTD
Approved: Jan 31, 1992 | RLD: No | RS: No | Type: DISCN